FAERS Safety Report 9466808 (Version 1)
Quarter: 2013Q3

REPORT INFORMATION
  Report Type: Spontaneous
  Country: FR (occurrence: FR)
  Receive Date: 20130820
  Receipt Date: 20130820
  Transmission Date: 20140515
  Serious: Yes (Hospitalization)
  Sender: FDA-Public Use
  Company Number: FR-BRISTOL-MYERS SQUIBB COMPANY-19185883

PATIENT
  Age: 83 Year
  Sex: Female

DRUGS (8)
  1. ORENCIA FOR INJ 250 MG/VIAL [Suspect]
     Indication: RHEUMATOID ARTHRITIS
     Dosage: ORENCIA 250 MG POWDER FOR CONCENTRATE FOR SOLUTION FOR INFUSION
     Route: 042
     Dates: start: 20130419
  2. METHOTREXATE [Concomitant]
     Indication: RHEUMATOID ARTHRITIS
     Route: 048
     Dates: start: 2003
  3. CORTANCYL [Concomitant]
     Indication: RHEUMATOID ARTHRITIS
     Dosage: TABS
     Route: 048
  4. SPECIAFOLDINE [Concomitant]
     Dosage: TABS
     Route: 048
     Dates: start: 2003
  5. IZILOX [Concomitant]
     Dosage: IZILOX 400, FILM-COATED TABLET (MOXIFLOXACIN HYDROCHLORIDE)
     Route: 048
     Dates: end: 20130729
  6. LEVOTHYROX [Concomitant]
     Indication: HYPOTHYROIDISM
     Dosage: SCORED TABLET
     Route: 048
  7. KARDEGIC [Concomitant]
     Dosage: POWDER FOR ORAL SOLUTION IN SINGLE-DOSE SACHETS
     Route: 048
  8. ACTONEL [Concomitant]
     Route: 048

REACTIONS (2)
  - Pulmonary embolism [Recovering/Resolving]
  - Pneumonia [Recovering/Resolving]
